FAERS Safety Report 18934093 (Version 1)
Quarter: 2021Q1

REPORT INFORMATION
  Report Type: Spontaneous
  Country: US (occurrence: US)
  Receive Date: 20210224
  Receipt Date: 20210224
  Transmission Date: 20210420
  Serious: No
  Sender: FDA-Public Use
  Company Number: None

PATIENT
  Age: 46 Year
  Sex: Female
  Weight: 49.05 kg

DRUGS (11)
  1. VIT D?3 [Concomitant]
  2. ZINC. [Concomitant]
     Active Substance: ZINC
  3. OMEGA?3 ACIDS [Concomitant]
     Active Substance: OMEGA-3 FATTY ACIDS
  4. BUPROPION HYDROCHLORIDE XL [Suspect]
     Active Substance: BUPROPION HYDROCHLORIDE
     Indication: DEPRESSION
     Dosage: ?          QUANTITY:1 TABLET(S);?
     Route: 048
     Dates: start: 20161205, end: 20210211
  5. VITAMIN C [Concomitant]
     Active Substance: ASCORBIC ACID
  6. APPLE CIDER VINEGAR [Concomitant]
     Active Substance: APPLE CIDER VINEGAR
  7. MULTIVITAMIN [Concomitant]
     Active Substance: VITAMINS
  8. KELP [Concomitant]
     Active Substance: KELP
  9. EXCEDRIN MIGRAINE [Concomitant]
     Active Substance: ACETAMINOPHEN\ASPIRIN\CAFFEINE
  10. MAGNESIUM [Concomitant]
     Active Substance: MAGNESIUM
  11. TURMERIC [Concomitant]
     Active Substance: HERBALS\TURMERIC

REACTIONS (19)
  - Product complaint [None]
  - Drug ineffective [None]
  - Product substitution issue [None]
  - Abnormal behaviour [None]
  - Confusional state [None]
  - Memory impairment [None]
  - Dysgraphia [None]
  - Mood altered [None]
  - Cognitive disorder [None]
  - Insomnia [None]
  - Therapeutic response changed [None]
  - Constipation [None]
  - Night sweats [None]
  - Feeling abnormal [None]
  - Anxiety [None]
  - Product quality issue [None]
  - Mental disorder [None]
  - Disturbance in attention [None]
  - Aphasia [None]

NARRATIVE: CASE EVENT DATE: 20201117
